FAERS Safety Report 8015315-8 (Version None)
Quarter: 2011Q4

REPORT INFORMATION
  Report Type: 
  Country: None (occurrence: None)
  Receive Date: 20111223
  Receipt Date: 20111215
  Transmission Date: 20120403
  Serious: Yes (Other)
  Sender: FDA-Public Use
  Company Number: 1000026239

PATIENT
  Age: 35 Year
  Sex: Female

DRUGS (3)
  1. SAVELLA [Suspect]
     Indication: FIBROMYALGIA
     Dosage: 12.5; 25 MG (12.5 MG, 1 IN 1 D), ORAL
     Route: 048
     Dates: start: 20110702, end: 20110703
  2. SAVELLA [Suspect]
     Indication: FIBROMYALGIA
     Dosage: 12.5; 25 MG (12.5 MG, 1 IN 1 D), ORAL
     Route: 048
     Dates: start: 20110701, end: 20110701
  3. SAVELLA [Suspect]
     Indication: FIBROMYALGIA
     Dosage: 50 MG (25 MG, 2 IN 1 D), ORAL
     Route: 048
     Dates: start: 20110704, end: 20110704

REACTIONS (3)
  - NAUSEA [None]
  - DIARRHOEA HAEMORRHAGIC [None]
  - ABDOMINAL PAIN UPPER [None]
